FAERS Safety Report 19135146 (Version 2)
Quarter: 2021Q2

REPORT INFORMATION
  Report Type: Spontaneous
  Country: NL (occurrence: NL)
  Receive Date: 20210414
  Receipt Date: 20210426
  Transmission Date: 20210717
  Serious: Yes (Death)
  Sender: FDA-Public Use
  Company Number: NVSC2021NL083303

PATIENT
  Age: 69 Year
  Sex: Male
  Weight: 77 kg

DRUGS (9)
  1. PREDNISONE. [Suspect]
     Active Substance: PREDNISONE
     Indication: PRODUCT USED FOR UNKNOWN INDICATION
     Dosage: UNK (1 DD 1.5)
     Route: 065
     Dates: start: 20141014
  2. NOVORAPID [Concomitant]
     Active Substance: INSULIN ASPART
     Indication: PRODUCT USED FOR UNKNOWN INDICATION
     Dosage: UNK (INJECTIEVLOEISTOF, 100 EENHEDEN/ML (EENHEDEN PER MILLILITER))
     Route: 065
  3. APROVEL [Concomitant]
     Active Substance: IRBESARTAN
     Indication: PRODUCT USED FOR UNKNOWN INDICATION
     Dosage: 150 MG
     Route: 065
  4. CARVEDILOL. [Concomitant]
     Active Substance: CARVEDILOL
     Indication: PRODUCT USED FOR UNKNOWN INDICATION
     Dosage: 12.5 MG
     Route: 065
  5. PANTOPRAZOLE [Concomitant]
     Active Substance: PANTOPRAZOLE
     Indication: PRODUCT USED FOR UNKNOWN INDICATION
     Dosage: 40 MG (MAAGSAPRESISTENTE TABLET)
     Route: 065
  6. GLICLAZIDE [Concomitant]
     Active Substance: GLICLAZIDE
     Indication: PRODUCT USED FOR UNKNOWN INDICATION
     Dosage: UNK (TABLET MET GEREGULEERDE AFGIFTE, 80 MG (MILLIGRAM))
     Route: 065
  7. ISOPHANE INSULIN [Concomitant]
     Active Substance: INSULIN NOS
     Indication: PRODUCT USED FOR UNKNOWN INDICATION
     Dosage: UNK (SUSPENSIE VOOR INJECTIE, 100 IE/ML (EENHEDEN PER MILLILITER))
     Route: 065
  8. PROGRAFT [Suspect]
     Active Substance: TACROLIMUS
     Indication: PRODUCT USED FOR UNKNOWN INDICATION
     Dosage: UNK, 2D1
     Route: 065
     Dates: start: 20151013, end: 20210401
  9. METFORMINE [Concomitant]
     Active Substance: METFORMIN HYDROCHLORIDE
     Indication: PRODUCT USED FOR UNKNOWN INDICATION
     Dosage: 500 MG (TABLET MET GEREGULEERDE AFGIFTE)
     Route: 065

REACTIONS (4)
  - Hyperammonaemia [Fatal]
  - Loss of consciousness [Unknown]
  - Confusional state [Unknown]
  - Aggression [Unknown]

NARRATIVE: CASE EVENT DATE: 20210326
